FAERS Safety Report 9530891 (Version 1)
Quarter: 2013Q3

REPORT INFORMATION
  Report Type: Spontaneous
  Country: US (occurrence: None)
  Receive Date: 20130916
  Receipt Date: 20130916
  Transmission Date: 20140515
  Serious: Yes (Hospitalization)
  Sender: FDA-Public Use
  Company Number: None

PATIENT
  Age: 43 Year
  Sex: Female
  Weight: 44.4 kg

DRUGS (1)
  1. 5-FLUOROURACIL [Suspect]

REACTIONS (7)
  - Toxicity to various agents [None]
  - Sinus tachycardia [None]
  - Post procedural complication [None]
  - Small intestinal obstruction [None]
  - Hypotension [None]
  - Nausea [None]
  - Vomiting [None]
